FAERS Safety Report 15046099 (Version 5)
Quarter: 2020Q4

REPORT INFORMATION
  Report Type: Report from Study
  Country: JP (occurrence: JP)
  Receive Date: 20180621
  Receipt Date: 20201021
  Transmission Date: 20210113
  Serious: Yes (Hospitalization, Other)
  Sender: FDA-Public Use
  Company Number: JP-BRISTOL-MYERS SQUIBB COMPANY-BMS-2018-056127

PATIENT
  Age: 70 Year
  Sex: Male
  Weight: 51 kg

DRUGS (6)
  1. NIVOLUMAB [Suspect]
     Active Substance: NIVOLUMAB
     Indication: GASTRIC CANCER
     Dosage: 360 MG, Q3WK
     Route: 041
     Dates: start: 20180112, end: 20180727
  2. METHYCOBAL [Concomitant]
     Active Substance: METHYLCOBALAMIN
     Indication: SPINAL STENOSIS
     Dosage: 1.5 MG, TID
     Route: 048
     Dates: start: 20171211
  3. TEGAFUR,GIMERACIL,OTERACIL POTASSIUM [Suspect]
     Active Substance: GIMERACIL\OTERACIL\TEGAFUR
     Indication: GASTRIC CANCER
     Dosage: 120 MILLIGRAM, QD
     Route: 048
     Dates: start: 20180318
  4. OPALMON [Concomitant]
     Active Substance: LIMAPROST
     Indication: SPINAL STENOSIS
     Dosage: 15 MICROGRAM, TID
     Route: 048
     Dates: start: 20171211
  5. OLMETEC [Concomitant]
     Active Substance: OLMESARTAN MEDOXOMIL
     Indication: HYPERTENSION
     Dosage: 20 MG, QD (AFTER BREAKFAST)
     Route: 048
     Dates: start: 20171211
  6. MYONAL [EPIRIZOLE HYDROCHLORIDE] [Concomitant]
     Indication: SPINAL STENOSIS
     Dosage: 130 MG, TID
     Route: 048
     Dates: start: 20171211

REACTIONS (2)
  - Febrile neutropenia [Recovered/Resolved]
  - Secondary adrenocortical insufficiency [Recovering/Resolving]

NARRATIVE: CASE EVENT DATE: 20180608
